FAERS Safety Report 19392596 (Version 1)
Quarter: 2021Q2

REPORT INFORMATION
  Report Type: Spontaneous
  Country: US (occurrence: US)
  Receive Date: 20210609
  Receipt Date: 20210609
  Transmission Date: 20210717
  Serious: Yes (Hospitalization, Other)
  Sender: FDA-Public Use
  Company Number: US-ASTRAZENECA-2021A492480

PATIENT
  Age: 45 Year
  Sex: Female
  Weight: 116.1 kg

DRUGS (3)
  1. COUMADIN [Concomitant]
     Active Substance: WARFARIN SODIUM
  2. GLIPIZIDE ER [Concomitant]
     Active Substance: GLIPIZIDE
     Indication: DIABETES MELLITUS
  3. BYDUREON [Suspect]
     Active Substance: EXENATIDE
     Indication: DIABETES MELLITUS
     Dosage: 2.0MG AS REQUIRED
     Route: 065

REACTIONS (15)
  - Colon cancer recurrent [Recovered/Resolved]
  - Dysstasia [Recovered/Resolved]
  - Oedema peripheral [Not Recovered/Not Resolved]
  - Blood potassium increased [Recovered/Resolved]
  - Pain in extremity [Not Recovered/Not Resolved]
  - Memory impairment [Not Recovered/Not Resolved]
  - Hernia [Recovered/Resolved]
  - Renal failure [Recovered/Resolved]
  - Device leakage [Unknown]
  - Product use issue [Not Recovered/Not Resolved]
  - Glycosylated haemoglobin abnormal [Unknown]
  - Thrombosis [Recovered/Resolved]
  - Blood pressure decreased [Recovered/Resolved]
  - Blood glucose fluctuation [Unknown]
  - Heart rate abnormal [Recovered/Resolved]

NARRATIVE: CASE EVENT DATE: 2011
